FAERS Safety Report 20422795 (Version 1)
Quarter: 2022Q1

REPORT INFORMATION
  Report Type: Spontaneous
  Country: IT (occurrence: None)
  Receive Date: 20220203
  Receipt Date: 20220203
  Transmission Date: 20220423
  Serious: Yes (Hospitalization)
  Sender: FDA-Public Use
  Company Number: 2022A043962

PATIENT
  Age: 49 Year
  Sex: Female

DRUGS (6)
  1. QUETIAPINE FUMARATE [Suspect]
     Active Substance: QUETIAPINE FUMARATE
     Indication: Drug abuse
     Dosage: 50.0MG ONCE/SINGLE ADMINISTRATION
     Route: 048
     Dates: start: 20210831, end: 20210831
  2. PALEXIA [Suspect]
     Active Substance: TAPENTADOL HYDROCHLORIDE
     Indication: Drug abuse
     Dosage: 2.0DF ONCE/SINGLE ADMINISTRATION
     Route: 048
     Dates: start: 20210831, end: 20210831
  3. AMITRIPTYLINE HYDROCHLORIDE\PERPHENAZINE [Suspect]
     Active Substance: AMITRIPTYLINE HYDROCHLORIDE\PERPHENAZINE
     Indication: Drug abuse
     Route: 048
     Dates: start: 20210831, end: 20210831
  4. LORAZEPAM [Suspect]
     Active Substance: LORAZEPAM
     Indication: Drug abuse
     Dosage: 2.5MG ONCE/SINGLE ADMINISTRATION
     Route: 048
     Dates: start: 20210831, end: 20210831
  5. RAMIPRIL [Concomitant]
     Active Substance: RAMIPRIL
     Dosage: 5.0MG UNKNOWN
     Route: 065
  6. NEBIVOLOL [Concomitant]
     Active Substance: NEBIVOLOL
     Route: 065

REACTIONS (3)
  - Speech disorder [Not Recovered/Not Resolved]
  - Sopor [Not Recovered/Not Resolved]
  - Drug abuse [Not Recovered/Not Resolved]

NARRATIVE: CASE EVENT DATE: 20210831
